FAERS Safety Report 23223542 (Version 3)
Quarter: 2023Q4

REPORT INFORMATION
  Report Type: Spontaneous
  Country: JP (occurrence: JP)
  Receive Date: 20231124
  Receipt Date: 20231229
  Transmission Date: 20240110
  Serious: Yes (Other)
  Sender: FDA-Public Use
  Company Number: JP-ABBVIE-5509823

PATIENT
  Age: 2 Month
  Sex: Male
  Weight: 6.4 kg

DRUGS (1)
  1. SEVOFLURANE [Suspect]
     Active Substance: SEVOFLURANE
     Indication: Induction of anaesthesia
     Route: 065

REACTIONS (5)
  - Cardiomyopathy [Unknown]
  - Blood pressure decreased [Recovered/Resolved]
  - Electrocardiogram ST segment depression [Recovering/Resolving]
  - Ejection fraction decreased [Unknown]
  - Electrocardiogram ST segment depression [Recovered/Resolved]
